FAERS Safety Report 6817956-X (Version None)
Quarter: 2010Q3

REPORT INFORMATION
  Report Type: 
  Country: None (occurrence: None)
  Receive Date: 20100706
  Receipt Date: 20100626
  Transmission Date: 20110219
  Serious: Yes (Other)
  Sender: FDA-Public Use
  Company Number: US-ASTRAZENECA-2010SE25263

PATIENT
  Age: 61 Year
  Sex: Female
  Weight: 90.3 kg

DRUGS (5)
  1. NEXIUM [Suspect]
     Indication: ULCER HAEMORRHAGE
     Route: 048
  2. NEXIUM [Suspect]
     Route: 048
  3. INSULIN [Concomitant]
  4. ASPIRIN [Concomitant]
  5. XANAX [Concomitant]

REACTIONS (7)
  - ABDOMINAL PAIN UPPER [None]
  - BALANCE DISORDER [None]
  - DIARRHOEA [None]
  - DRUG DOSE OMISSION [None]
  - FALL [None]
  - GASTRITIS [None]
  - LIMB INJURY [None]
